FAERS Safety Report 4294052-X (Version None)
Quarter: 2004Q1

REPORT INFORMATION
  Report Type: 
  Country: None (occurrence: None)
  Receive Date: 20040211
  Receipt Date: 20040126
  Transmission Date: 20041129
  Serious: Yes (Death, Hospitalization)
  Sender: FDA-Public Use
  Company Number: DSA_60391_2004

PATIENT
  Age: 38 Year
  Sex: Female

DRUGS (3)
  1. MYSOLINE [Suspect]
     Indication: EPILEPSY
     Dosage: UNK
     Route: 065
     Dates: start: 19850701, end: 20021201
  2. TOPIRMATE [Concomitant]
  3. LAMOTRIGINE [Concomitant]

REACTIONS (4)
  - CONVULSION [None]
  - DEPRESSION [None]
  - PSYCHOTIC DISORDER [None]
  - SUDDEN DEATH [None]
